FAERS Safety Report 6682008-9 (Version None)
Quarter: 2010Q2

REPORT INFORMATION
  Report Type: 
  Country: None (occurrence: None)
  Receive Date: 20100414
  Receipt Date: 20100414
  Transmission Date: 20101027
  Serious: No
  Sender: FDA-Public Use
  Company Number: None

PATIENT
  Sex: Female
  Weight: 65.7716 kg

DRUGS (2)
  1. SF 1.1% GEL CYPRESS 1.1% SODIUM FLOURIDE CYPRESS PHARMACEUTICAL INC [Suspect]
     Indication: DENTAL CARIES
     Dosage: 1.1% SODIUM FLOURIDE EVERY DAY BUCCAL ONE TIME ON DEC 31 2009 ONE TIME A WEEK LATER
     Route: 002
     Dates: start: 20091231
  2. SF 1.1% GEL CYPRESS 1.1% SODIUM FLOURIDE CYPRESS PHARMACEUTICAL INC [Suspect]
     Indication: POST PROCEDURAL COMPLICATION
     Dosage: 1.1% SODIUM FLOURIDE EVERY DAY BUCCAL ONE TIME ON DEC 31 2009 ONE TIME A WEEK LATER
     Route: 002
     Dates: start: 20091231

REACTIONS (3)
  - CHILLS [None]
  - DISCOMFORT [None]
  - PILOERECTION [None]
